FAERS Safety Report 5331963-8 (Version None)
Quarter: 2007Q2

REPORT INFORMATION
  Report Type: 
  Country: None (occurrence: None)
  Receive Date: 20070521
  Receipt Date: 20070508
  Transmission Date: 20071010
  Serious: Yes (Hospitalization, Other)
  Sender: FDA-Public Use
  Company Number: 2006BI015636

PATIENT
  Age: 69 Year
  Sex: Female

DRUGS (8)
  1. AVONEX [Suspect]
     Indication: MULTIPLE SCLEROSIS
     Dosage: 30 UG;QW;IM
     Route: 030
     Dates: start: 19970501
  2. AVONEX [Suspect]
     Indication: MULTIPLE SCLEROSIS
     Dosage: 30 UG;QW;IM
     Route: 030
     Dates: end: 20070101
  3. BACLOFEN [Concomitant]
  4. ZOCOR [Concomitant]
  5. ALLEGRA [Concomitant]
  6. CARDIAZEM [Concomitant]
  7. EVISTA [Concomitant]
  8. DITROPAN XL [Concomitant]

REACTIONS (7)
  - AMNESIA [None]
  - ASTHENIA [None]
  - COMA [None]
  - GRAND MAL CONVULSION [None]
  - PAIN [None]
  - PETIT MAL EPILEPSY [None]
  - SUPRAVENTRICULAR EXTRASYSTOLES [None]
